FAERS Safety Report 7145081-X (Version None)
Quarter: 2010Q4

REPORT INFORMATION
  Report Type: 
  Country: None (occurrence: None)
  Receive Date: 20101208
  Receipt Date: 20101126
  Transmission Date: 20110411
  Serious: Yes (Other)
  Sender: FDA-Public Use
  Company Number: PHHY2010VE80761

PATIENT
  Sex: Female

DRUGS (7)
  1. EXJADE [Suspect]
     Indication: IRON OVERLOAD
     Dosage: 1000 MG ONCE A DAY
     Route: 048
     Dates: start: 20100501
  2. NEORAL [Suspect]
     Indication: HAEMOGLOBIN INCREASED
     Dosage: 100 MG TWICE A DAY
     Route: 048
     Dates: start: 20100901, end: 20101101
  3. AMOXICILLIN [Concomitant]
     Indication: PYREXIA
     Dosage: 500 MG THREE TIMES A DAY (5 DAYS)
     Route: 048
  4. CIPROFLOXACIN [Concomitant]
     Indication: PYREXIA
     Dosage: 500 MG TWICE A DAY (10 DAYS)
  5. KETOPROFEN [Concomitant]
     Indication: PAIN
     Dosage: 100 MG
     Route: 048
  6. ATAMEL FORTE [Concomitant]
     Indication: PAIN
     Dosage: 650 MG
     Route: 048
  7. ENTEROGERMINA [Concomitant]
     Indication: DIARRHOEA

REACTIONS (4)
  - HAEMOGLOBIN DECREASED [None]
  - METASTASES TO SPINE [None]
  - PYREXIA [None]
  - SPINAL OPERATION [None]
